FAERS Safety Report 12999892 (Version 1)
Quarter: 2016Q4

REPORT INFORMATION
  Report Type: Spontaneous
  Country: US (occurrence: US)
  Receive Date: 20161205
  Receipt Date: 20161205
  Transmission Date: 20170207
  Serious: No
  Sender: FDA-Public Use
  Company Number: US-JUBILANT CADISTA PHARMACEUTICALS-2016JUB00106

PATIENT
  Age: 56 Year
  Sex: Female
  Weight: 45.35 kg

DRUGS (6)
  1. SPIRIVA CAPSULE INHALER [Concomitant]
     Dosage: UNK UNK, 1X/DAY
     Dates: start: 201510
  2. METHYLPREDNISOLONE. [Suspect]
     Active Substance: METHYLPREDNISOLONE
     Indication: SINUSITIS
     Dosage: UNK
     Route: 048
     Dates: start: 20160229, end: 20160303
  3. BREO ELLIPTA INHALER [Concomitant]
     Dosage: 200 MG, 1X/DAY
  4. LEVOFLOXACIN. [Suspect]
     Active Substance: LEVOFLOXACIN
     Indication: SINUSITIS
     Dosage: 500 MG, 1X/DAY
     Dates: start: 20160229, end: 20160302
  5. FLUTICASONE PROPIONATE. [Concomitant]
     Active Substance: FLUTICASONE PROPIONATE
     Dosage: UNK
  6. PANTOPRAZOLE SODIUM. [Concomitant]
     Active Substance: PANTOPRAZOLE SODIUM
     Dosage: 40 MG, 1X/DAY
     Dates: start: 201510

REACTIONS (9)
  - Nightmare [Recovered/Resolved]
  - Crying [Recovering/Resolving]
  - Impaired driving ability [Recovered/Resolved]
  - Insomnia [Recovering/Resolving]
  - Dizziness [Recovering/Resolving]
  - Anxiety [Recovering/Resolving]
  - Energy increased [Unknown]
  - Increased appetite [Not Recovered/Not Resolved]
  - Malaise [Recovering/Resolving]

NARRATIVE: CASE EVENT DATE: 20160229
